FAERS Safety Report 9854735 (Version 2)
Quarter: 2014Q1

REPORT INFORMATION
  Report Type: Spontaneous
  Country: US (occurrence: US)
  Receive Date: 20140130
  Receipt Date: 20140301
  Transmission Date: 20141002
  Serious: No
  Sender: FDA-Public Use
  Company Number: US-009507513-1401USA008194

PATIENT
  Age: 17 Year
  Sex: Female
  Weight: 68.93 kg

DRUGS (1)
  1. IMPLANON [Suspect]
     Indication: CONTRACEPTION
     Dosage: UNK
     Route: 059
     Dates: start: 20110511

REACTIONS (3)
  - Device kink [Not Recovered/Not Resolved]
  - Medical device discomfort [Unknown]
  - Weight increased [Not Recovered/Not Resolved]
